FAERS Safety Report 6053369-9 (Version None)
Quarter: 2009Q1

REPORT INFORMATION
  Report Type: 
  Country: None (occurrence: None)
  Receive Date: 20090127
  Receipt Date: 20080208
  Transmission Date: 20090719
  Serious: Yes (Hospitalization)
  Sender: FDA-Public Use
  Company Number: US-TEVA-166625USA

PATIENT
  Sex: Female
  Weight: 114.86 kg

DRUGS (12)
  1. COPAXONE [Suspect]
     Indication: MULTIPLE SCLEROSIS
     Route: 058
     Dates: start: 20030101, end: 20080120
  2. RANITIDINE HYDROCHLORIDE [Concomitant]
  3. ASPIRIN [Concomitant]
  4. CLONAZEPAM [Concomitant]
  5. BACLOFEN [Concomitant]
  6. VENLAFAXINE [Concomitant]
  7. GABAPENTIN [Concomitant]
  8. ESCITALOPRAM OXALATE [Concomitant]
  9. FAMOTIDINE [Concomitant]
  10. MODAFINIL [Concomitant]
  11. SOLIFENACIN [Concomitant]
  12. ZOLPIDEM TARTRATE [Concomitant]

REACTIONS (1)
  - ANAPHYLACTIC SHOCK [None]
